FAERS Safety Report 6406754-7 (Version None)
Quarter: 2009Q4

REPORT INFORMATION
  Report Type: 
  Country: None (occurrence: None)
  Receive Date: 20091020
  Receipt Date: 20091012
  Transmission Date: 20100525
  Serious: Yes (Other)
  Sender: FDA-Public Use
  Company Number: AT-JNJFOC-20090908153

PATIENT
  Age: 24 Year
  Sex: Female
  Weight: 59.8 kg

DRUGS (17)
  1. RISPERDAL [Suspect]
     Dosage: 0-0-0-1
     Route: 048
  2. RISPERDAL [Suspect]
     Route: 048
  3. RISPERDAL [Suspect]
     Route: 048
  4. RISPERDAL [Suspect]
     Route: 048
  5. RISPERDAL [Suspect]
     Indication: DRUG USE FOR UNKNOWN INDICATION
     Route: 048
  6. CIPRALEX [Suspect]
     Dosage: 2-0-0-0
     Route: 048
     Dates: start: 20080101
  7. CIPRALEX [Suspect]
     Indication: DRUG USE FOR UNKNOWN INDICATION
     Route: 048
     Dates: start: 20080101
  8. ZYPREXA [Concomitant]
     Route: 048
     Dates: start: 20090101, end: 20090221
  9. ZYPREXA [Concomitant]
     Route: 048
     Dates: start: 20090101, end: 20090221
  10. ZYPREXA [Concomitant]
     Route: 048
     Dates: start: 20090101, end: 20090221
  11. TEMESTA [Concomitant]
     Route: 048
     Dates: start: 20090101, end: 20090224
  12. TEMESTA [Concomitant]
     Route: 048
     Dates: start: 20090101, end: 20090224
  13. TEMESTA [Concomitant]
     Route: 048
     Dates: start: 20090101, end: 20090224
  14. TEMESTA [Concomitant]
     Route: 048
     Dates: start: 20090101, end: 20090224
  15. TEMESTA [Concomitant]
     Route: 048
     Dates: start: 20090101, end: 20090224
  16. TEMESTA [Concomitant]
     Route: 048
     Dates: start: 20090101, end: 20090224
  17. TEMESTA [Concomitant]
     Route: 048
     Dates: start: 20090101, end: 20090224

REACTIONS (1)
  - RESTLESS LEGS SYNDROME [None]
